FAERS Safety Report 5602666-7 (Version None)
Quarter: 2008Q1

REPORT INFORMATION
  Report Type: 
  Country: None (occurrence: None)
  Receive Date: 20080125
  Receipt Date: 20080116
  Transmission Date: 20080703
  Serious: Yes (Life-Threatening, Hospitalization)
  Sender: FDA-Public Use
  Company Number: US-GILEAD-2008-0014924

PATIENT
  Sex: Female
  Weight: 77.18 kg

DRUGS (11)
  1. LETAIRIS [Suspect]
     Indication: PULMONARY HYPERTENSION
     Route: 048
     Dates: start: 20070817, end: 20080108
  2. LASIX [Concomitant]
     Indication: PULMONARY HYPERTENSION
     Route: 048
  3. ADVAIR DISKUS 100/50 [Concomitant]
     Indication: ASTHMA
     Route: 055
  4. ALDACTONE [Concomitant]
     Indication: ASTHMA
     Route: 048
  5. COUMADIN [Concomitant]
     Indication: ANTICOAGULANT THERAPY
     Route: 048
  6. POTASSIUM CHLORIDE [Concomitant]
     Indication: MINERAL SUPPLEMENTATION
     Route: 048
  7. FLOLAN [Concomitant]
     Indication: PULMONARY HYPERTENSION
     Route: 042
  8. VITAMIN CAP [Concomitant]
     Indication: VITAMIN SUPPLEMENTATION
     Route: 048
  9. OXYCONTIN [Concomitant]
     Indication: PAIN
     Route: 048
  10. FENTANYL [Concomitant]
     Indication: PAIN
     Route: 048
  11. HOME OXYGEN [Concomitant]
     Dosage: 2 LITERS/MINUTE
     Route: 055

REACTIONS (3)
  - FLUID OVERLOAD [None]
  - PULMONARY HYPERTENSION [None]
  - PULMONARY OEDEMA [None]
